FAERS Safety Report 15867707 (Version 1)
Quarter: 2019Q1

REPORT INFORMATION
  Report Type: Spontaneous
  Country: US (occurrence: US)
  Receive Date: 20190125
  Receipt Date: 20190125
  Transmission Date: 20190417
  Serious: No
  Sender: FDA-Public Use
  Company Number: US-TEVA-2019-US-996085

PATIENT
  Age: 91 Year
  Sex: Male
  Weight: 68.95 kg

DRUGS (2)
  1. RISEDRONATE SODIUM-BP [Suspect]
     Active Substance: RISEDRONATE SODIUM
     Indication: BONE LOSS
     Dosage: 5 MILLIGRAM DAILY;
     Route: 048
     Dates: start: 2013, end: 20181215
  2. RISEDRONATE SODIUM-BP [Suspect]
     Active Substance: RISEDRONATE SODIUM
     Indication: OSTEOPOROSIS

REACTIONS (1)
  - Pain in extremity [Not Recovered/Not Resolved]

NARRATIVE: CASE EVENT DATE: 201810
